FAERS Safety Report 20207828 (Version 2)
Quarter: 2021Q4

REPORT INFORMATION
  Report Type: Report from Study
  Country: US (occurrence: US)
  Receive Date: 20211220
  Receipt Date: 20211223
  Transmission Date: 20220303
  Serious: Yes (Other)
  Sender: FDA-Public Use
  Company Number: US-PFIZER INC-202101771273

PATIENT
  Age: 88 Year
  Sex: Male

DRUGS (8)
  1. LORBRENA [Suspect]
     Active Substance: LORLATINIB
     Dosage: 100 MG, DAILY
     Route: 048
  2. FINASTERIDE [Concomitant]
     Active Substance: FINASTERIDE
     Dosage: 5 MG
  3. KLOR CON M [Concomitant]
     Active Substance: POTASSIUM CHLORIDE
     Dosage: 10 MEQ
  4. METOPROLOL [Concomitant]
     Active Substance: METOPROLOL
     Dosage: 50 MG
  5. RAPAFLO [Concomitant]
     Active Substance: SILODOSIN
     Dosage: 8 MG
  6. SENOKOT [Concomitant]
     Active Substance: SENNOSIDES
     Dosage: 8.6 MG
  7. TORSEMIDE [Concomitant]
     Active Substance: TORSEMIDE
     Dosage: 20 MG
  8. XARELTO [Concomitant]
     Active Substance: RIVAROXABAN
     Dosage: 15 MG

REACTIONS (1)
  - Hallucination [Recovered/Resolved]

NARRATIVE: CASE EVENT DATE: 20211210
